FAERS Safety Report 23402781 (Version 3)
Quarter: 2024Q1

REPORT INFORMATION
  Report Type: Spontaneous
  Country: BR (occurrence: BR)
  Receive Date: 20240115
  Receipt Date: 20240209
  Transmission Date: 20240409
  Serious: Yes (Other)
  Sender: FDA-Public Use
  Company Number: BR-009507513-2312BRA005515

PATIENT
  Age: 39 Year
  Sex: Female
  Weight: 67 kg

DRUGS (25)
  1. PEMBROLIZUMAB [Suspect]
     Active Substance: PEMBROLIZUMAB
     Indication: Triple negative breast cancer
     Dosage: 200 MILLIGRAM, ENDOVENOUS, EVERY 21 DAYS (Q3W), IN NEOADJUVANCE Q3W
     Route: 042
     Dates: start: 20230811, end: 20231103
  2. PACLITAXEL [Suspect]
     Active Substance: PACLITAXEL
     Indication: Triple negative breast cancer
     Dosage: 134.38 MG, WEEKLY (QW)
     Route: 042
     Dates: start: 20230811, end: 20230811
  3. PACLITAXEL [Suspect]
     Active Substance: PACLITAXEL
     Dosage: UNK, QW
     Route: 042
     Dates: start: 20230818, end: 20230818
  4. PACLITAXEL [Suspect]
     Active Substance: PACLITAXEL
     Dosage: UNK, QW
     Route: 042
     Dates: start: 20230825, end: 20230825
  5. PACLITAXEL [Suspect]
     Active Substance: PACLITAXEL
     Dosage: UNK, QW
     Route: 042
     Dates: start: 20230901, end: 20230901
  6. PACLITAXEL [Suspect]
     Active Substance: PACLITAXEL
     Dosage: UNK, QW
     Route: 042
     Dates: start: 20230915, end: 20230915
  7. PACLITAXEL [Suspect]
     Active Substance: PACLITAXEL
     Dosage: UNK, QW
     Route: 042
     Dates: start: 20230922, end: 20230922
  8. PACLITAXEL [Suspect]
     Active Substance: PACLITAXEL
     Dosage: UNK, QW
     Route: 042
     Dates: start: 20230929, end: 20230929
  9. PACLITAXEL [Suspect]
     Active Substance: PACLITAXEL
     Dosage: UNK, QW
     Route: 042
     Dates: start: 20231006, end: 20231006
  10. PACLITAXEL [Suspect]
     Active Substance: PACLITAXEL
     Dosage: UNK, QW
     Route: 042
     Dates: start: 20231013, end: 20231013
  11. PACLITAXEL [Suspect]
     Active Substance: PACLITAXEL
     Dosage: UNK, QW
     Route: 042
     Dates: start: 20231020, end: 20231020
  12. PACLITAXEL [Suspect]
     Active Substance: PACLITAXEL
     Dosage: UNK, QW
     Route: 042
     Dates: start: 20231027, end: 20231027
  13. PACLITAXEL [Suspect]
     Active Substance: PACLITAXEL
     Dosage: UNK, QW
     Route: 042
     Dates: start: 20231103
  14. CARBOPLATIN [Suspect]
     Active Substance: CARBOPLATIN
     Indication: Triple negative breast cancer
     Dosage: 198 MG, WEEKLY (QW)
     Route: 042
     Dates: start: 20230811, end: 20230811
  15. CARBOPLATIN [Suspect]
     Active Substance: CARBOPLATIN
     Dosage: QW
     Route: 042
     Dates: start: 20230818, end: 20230818
  16. CARBOPLATIN [Suspect]
     Active Substance: CARBOPLATIN
     Dosage: QW
     Route: 042
     Dates: start: 20230825, end: 20230825
  17. CARBOPLATIN [Suspect]
     Active Substance: CARBOPLATIN
     Dosage: QW
     Route: 042
     Dates: start: 20230901, end: 20230901
  18. CARBOPLATIN [Suspect]
     Active Substance: CARBOPLATIN
     Dosage: QW
     Route: 042
     Dates: start: 20230915, end: 20230915
  19. CARBOPLATIN [Suspect]
     Active Substance: CARBOPLATIN
     Dosage: QW
     Route: 042
     Dates: start: 20230922, end: 20230922
  20. CARBOPLATIN [Suspect]
     Active Substance: CARBOPLATIN
     Dosage: QW
     Route: 042
     Dates: start: 20230929, end: 20230929
  21. CARBOPLATIN [Suspect]
     Active Substance: CARBOPLATIN
     Dosage: QW
     Route: 042
     Dates: start: 20231006, end: 20231006
  22. CARBOPLATIN [Suspect]
     Active Substance: CARBOPLATIN
     Dosage: QW
     Route: 042
     Dates: start: 20231013, end: 20231013
  23. CARBOPLATIN [Suspect]
     Active Substance: CARBOPLATIN
     Dosage: QW
     Route: 042
     Dates: start: 20231020, end: 20231020
  24. CARBOPLATIN [Suspect]
     Active Substance: CARBOPLATIN
     Dosage: QW
     Route: 042
     Dates: start: 20231027, end: 20231027
  25. CARBOPLATIN [Suspect]
     Active Substance: CARBOPLATIN
     Dosage: QW
     Route: 042
     Dates: start: 20231103

REACTIONS (1)
  - Skin reaction [Recovered/Resolved]

NARRATIVE: CASE EVENT DATE: 20231103
